FAERS Safety Report 6385540-0 (Version None)
Quarter: 2009Q4

REPORT INFORMATION
  Report Type: 
  Country: None (occurrence: None)
  Receive Date: 20091002
  Receipt Date: 20080924
  Transmission Date: 20100525
  Serious: No
  Sender: FDA-Public Use
  Company Number: US-ASTRAZENECA-2008UW20096

PATIENT
  Sex: Female
  Weight: 72.1 kg

DRUGS (8)
  1. ARIMIDEX [Suspect]
     Indication: BREAST CANCER
     Route: 048
  2. CALCIUM [Concomitant]
     Dosage: 1200 MG
  3. VITAMIN D [Concomitant]
     Dosage: 600 MG
  4. PREVACID [Concomitant]
  5. ADVAIR DISKUS 100/50 [Concomitant]
  6. XANAX [Concomitant]
  7. ZOLOFT [Concomitant]
  8. OMNARIS [Concomitant]

REACTIONS (3)
  - BODY HEIGHT DECREASED [None]
  - DYSPHAGIA [None]
  - OSTEOPOROSIS [None]
